FAERS Safety Report 4864435-5 (Version None)
Quarter: 2005Q4

REPORT INFORMATION
  Report Type: 
  Country: None (occurrence: None)
  Receive Date: 20051222
  Receipt Date: 20051212
  Transmission Date: 20060501
  Serious: Yes (Hospitalization)
  Sender: FDA-Public Use
  Company Number: US-JNJFOC-20051204611

PATIENT
  Age: 7 Month
  Sex: Female
  Weight: 10 kg

DRUGS (2)
  1. ACETAMINOPHEN [Suspect]
  2. ACETAMINOPHEN [Suspect]

REACTIONS (5)
  - ACCIDENTAL OVERDOSE [None]
  - DRUG DISPENSING ERROR [None]
  - HEPATOTOXICITY [None]
  - INCORRECT DRUG DOSAGE FORM ADMINISTERED [None]
  - VOMITING [None]
